FAERS Safety Report 6457133-8 (Version None)
Quarter: 2009Q4

REPORT INFORMATION
  Report Type: 
  Country: None (occurrence: None)
  Receive Date: 20091125
  Receipt Date: 20091117
  Transmission Date: 20100525
  Serious: Yes (Other)
  Sender: FDA-Public Use
  Company Number: B0606450A

PATIENT
  Age: 56 Year
  Sex: Female
  Weight: 67 kg

DRUGS (2)
  1. ARIXTRA [Suspect]
     Indication: THROMBOSIS PROPHYLAXIS
     Dosage: 2.5MG PER DAY
     Route: 058
     Dates: start: 20091103, end: 20091112
  2. DAFALGAN [Concomitant]
     Indication: PAIN
     Route: 065

REACTIONS (5)
  - CONSTIPATION [None]
  - HAEMATOMA [None]
  - MUSCLE HAEMORRHAGE [None]
  - NECROSIS [None]
  - OFF LABEL USE [None]
